FAERS Safety Report 4962384-5 (Version None)
Quarter: 2006Q2

REPORT INFORMATION
  Report Type: 
  Country: None (occurrence: None)
  Receive Date: 20060404
  Receipt Date: 20060119
  Transmission Date: 20061013
  Serious: Yes (Hospitalization)
  Sender: FDA-Public Use
  Company Number: US-AMGEN-US165681

PATIENT
  Age: 60 Year
  Sex: Female
  Weight: 65.8 kg

DRUGS (10)
  1. PROCRIT [Suspect]
     Indication: ANAEMIA
     Dates: start: 20051128, end: 20060104
  2. PEG-INTRON [Suspect]
     Route: 058
     Dates: start: 20051024, end: 20051225
  3. RIBAVIRIN [Suspect]
     Route: 048
     Dates: start: 20051031, end: 20051230
  4. PLACEBO [Suspect]
     Route: 048
     Dates: start: 20051031, end: 20051230
  5. VALACYCLOVIR HCL [Concomitant]
     Dates: start: 20050501
  6. ESTRADIOL [Concomitant]
     Dates: start: 19950101
  7. TRAZODONE HCL [Concomitant]
     Dates: start: 20051026, end: 20051106
  8. LEXAPRO [Concomitant]
     Dates: start: 20050901
  9. ACIPHEX [Concomitant]
     Dates: start: 20050901
  10. TYLENOL (CAPLET) [Concomitant]
     Dates: start: 20051024

REACTIONS (4)
  - ANAEMIA [None]
  - CONVULSION [None]
  - HYPERTENSIVE CRISIS [None]
  - REVERSIBLE POSTERIOR LEUKOENCEPHALOPATHY SYNDROME [None]
